FAERS Safety Report 7387272-9 (Version None)
Quarter: 2011Q1

REPORT INFORMATION
  Report Type: 
  Country: None (occurrence: None)
  Receive Date: 20110331
  Receipt Date: 20110324
  Transmission Date: 20110831
  Serious: Yes (Other)
  Sender: FDA-Public Use
  Company Number: US-PFIZER INC-2011065892

PATIENT
  Sex: Male
  Weight: 113.3 kg

DRUGS (2)
  1. CHANTIX [Suspect]
     Dosage: 1 MG, 2X/DAY
     Route: 048
  2. CHANTIX [Suspect]
     Indication: SMOKING CESSATION THERAPY
     Dosage: 0.5 MG, 1X/DAY
     Dates: start: 20110314

REACTIONS (11)
  - HEADACHE [None]
  - PILOERECTION [None]
  - NAUSEA [None]
  - OROPHARYNGEAL PAIN [None]
  - DECREASED APPETITE [None]
  - BURNING SENSATION [None]
  - SKIN BURNING SENSATION [None]
  - BODY TEMPERATURE DECREASED [None]
  - NASOPHARYNGITIS [None]
  - APHAGIA [None]
  - CHILLS [None]
